FAERS Safety Report 20767360 (Version 2)
Quarter: 2022Q2

REPORT INFORMATION
  Report Type: Spontaneous
  Country: US (occurrence: US)
  Receive Date: 20220429
  Receipt Date: 20220510
  Transmission Date: 20220721
  Serious: Yes (Other)
  Sender: FDA-Public Use
  Company Number: US-AMGEN-USASP2022069321

PATIENT
  Age: 66 Year
  Sex: Male

DRUGS (2)
  1. MVASI [Suspect]
     Active Substance: BEVACIZUMAB-AWWB
     Indication: Glioblastoma
     Dosage: 1000 MG WASTED
     Route: 065
     Dates: start: 20220307
  2. MVASI [Suspect]
     Active Substance: BEVACIZUMAB-AWWB
     Indication: Brain neoplasm
     Dosage: 1000 MG WASTED
     Route: 065
     Dates: start: 20220425

REACTIONS (1)
  - Glioblastoma [Not Recovered/Not Resolved]
